FAERS Safety Report 6528222-4 (Version None)
Quarter: 2009Q4

REPORT INFORMATION
  Report Type: 
  Country: None (occurrence: None)
  Receive Date: 20091231
  Receipt Date: 20091217
  Transmission Date: 20100525
  Serious: Yes (Other)
  Sender: FDA-Public Use
  Company Number: 1000010827

PATIENT
  Age: 37 Year
  Sex: Female

DRUGS (4)
  1. ESCITALOPRAM [Suspect]
     Dosage: ORAL
     Route: 048
     Dates: start: 20090730
  2. MEDICATION NOS [Suspect]
     Dosage: (200 MG)
     Dates: start: 20091125
  3. SLEEPING PILL [Concomitant]
  4. HORMONE REPLACEMENT THERAPY [Concomitant]

REACTIONS (11)
  - APATHY [None]
  - CRYING [None]
  - DEPRESSED MOOD [None]
  - DISSOCIATION [None]
  - DIZZINESS [None]
  - FATIGUE [None]
  - FEELING HOT [None]
  - INSOMNIA [None]
  - SELF-INJURIOUS IDEATION [None]
  - SENSORY DISTURBANCE [None]
  - SOMNOLENCE [None]
